FAERS Safety Report 12293683 (Version 2)
Quarter: 2016Q2

REPORT INFORMATION
  Report Type: Report from Study
  Country: JP (occurrence: JP)
  Receive Date: 20160421
  Receipt Date: 20160606
  Transmission Date: 20160815
  Serious: Yes (Death, Hospitalization, Other)
  Sender: FDA-Public Use
  Company Number: JP-TAKEDA-2014TUS001052

PATIENT
  Age: 69 Year
  Sex: Female
  Weight: 40.5 kg

DRUGS (20)
  1. FERRUM                             /00023505/ [Concomitant]
     Indication: IRON DEFICIENCY ANAEMIA
     Dosage: 100 MG, QD
     Route: 048
     Dates: start: 20140214, end: 20140605
  2. BFLUID [Concomitant]
     Active Substance: AMINO ACIDS\DEXTROSE\ELECTROLYTES NOS\VITAMINS
     Dosage: 500 ML, QD
     Route: 041
     Dates: start: 20140423, end: 20140423
  3. ISOTONIC SODIUM CHLORIDE SOLUTION [Concomitant]
     Active Substance: SODIUM CHLORIDE
     Dosage: 100 ML, QD
     Route: 041
     Dates: start: 20140423, end: 20140423
  4. CELECOX [Concomitant]
     Active Substance: CELECOXIB
     Indication: COMPRESSION FRACTURE
     Dosage: 100 MG, BID
     Route: 048
     Dates: start: 20140131, end: 20140403
  5. FEBUXOSTAT. [Suspect]
     Active Substance: FEBUXOSTAT
     Indication: HYPERURICAEMIA
     Dosage: 10 MG, QD
     Route: 048
     Dates: start: 20120811, end: 20130613
  6. BRUFEN                             /00109201/ [Concomitant]
     Active Substance: IBUPROFEN
     Indication: ANALGESIC THERAPY
     Dosage: 200 MG, TID
     Route: 048
     Dates: start: 20140424, end: 20140426
  7. MARZULENE-S [Concomitant]
     Active Substance: SODIUM GUALENATE
     Indication: GASTRITIS PROPHYLAXIS
     Dosage: 0.5 G, TID
     Route: 048
     Dates: start: 20140424, end: 20140426
  8. FEMARA [Concomitant]
     Active Substance: LETROZOLE
     Indication: BREAST CANCER
     Dosage: 2.5 MG, QD
     Route: 048
     Dates: start: 20140514, end: 20141115
  9. CEFAZOLIN NA [Concomitant]
     Indication: INFECTION PROPHYLAXIS
     Dosage: 1 G, BID
     Route: 041
     Dates: start: 20140423, end: 20140424
  10. PARIET [Concomitant]
     Active Substance: RABEPRAZOLE SODIUM
     Indication: DUODENAL ULCER
     Dosage: 10 MG, QD
     Route: 048
     Dates: start: 20130726, end: 20141115
  11. BLOPRESS [Concomitant]
     Active Substance: CANDESARTAN CILEXETIL
     Indication: HYPERTENSION
     Dosage: 8 MG, QD
     Route: 048
     Dates: start: 20120811, end: 20130222
  12. VEEN D [Concomitant]
     Active Substance: CALCIUM CHLORIDE\DEXTROSE\POTASSIUM CHLORIDE\SODIUM ACETATE\SODIUM CHLORIDE
     Dosage: 500 ML, TID
     Route: 041
     Dates: start: 20140423, end: 20140423
  13. VEEN D [Concomitant]
     Active Substance: CALCIUM CHLORIDE\DEXTROSE\POTASSIUM CHLORIDE\SODIUM ACETATE\SODIUM CHLORIDE
     Dosage: 500 ML, QD
     Route: 042
     Dates: start: 20140424, end: 20140424
  14. ZEPOLAS [Concomitant]
     Indication: CERVICOBRACHIAL SYNDROME
     Dosage: 40 MG, BID
     Route: 061
     Dates: start: 20130726, end: 20141115
  15. FEBUXOSTAT. [Suspect]
     Active Substance: FEBUXOSTAT
     Dosage: 20 MG, QD
     Route: 048
     Dates: start: 20130614, end: 20140605
  16. TRANSAMIN [Concomitant]
     Active Substance: TRANEXAMIC ACID
     Indication: HAEMORRHAGE PROPHYLAXIS
     Dosage: 250 MG, TID
     Route: 048
     Dates: start: 20140424, end: 20140426
  17. ROPION [Concomitant]
     Active Substance: FLURBIPROFEN AXETIL
     Dosage: 50 MG, QD
     Route: 041
     Dates: start: 20140423, end: 20140423
  18. FEBUXOSTAT. [Suspect]
     Active Substance: FEBUXOSTAT
     Dosage: 40 MG, QD
     Route: 048
     Dates: start: 20140606, end: 20141116
  19. CO DIO COMBINATION [Concomitant]
     Active Substance: HYDROCHLOROTHIAZIDE\VALSARTAN
     Indication: HYPERTENSION
     Dosage: 1 DF, QD
     Route: 048
     Dates: start: 20130223, end: 20141115
  20. MUCOSTA [Concomitant]
     Active Substance: REBAMIPIDE
     Indication: DUODENAL ULCER
     Dosage: 100 MG, TID
     Route: 048
     Dates: start: 20130726, end: 20141115

REACTIONS (13)
  - Haemorrhagic erosive gastritis [Recovered/Resolved]
  - Iron deficiency anaemia [Recovered/Resolved]
  - Shock [Recovered/Resolved]
  - Cervicobrachial syndrome [Unknown]
  - Breast cancer [Recovering/Resolving]
  - Compression fracture [Recovered/Resolved]
  - Death [Fatal]
  - Breast adenoma [Recovered/Resolved]
  - Blood triglycerides increased [Recovered/Resolved]
  - Duodenal ulcer [Recovered/Resolved]
  - Blood uric acid increased [Recovered/Resolved]
  - Fracture nonunion [Recovering/Resolving]
  - Hypertension [Recovered/Resolved]

NARRATIVE: CASE EVENT DATE: 20121204
